FAERS Safety Report 12474960 (Version 1)
Quarter: 2016Q2

REPORT INFORMATION
  Report Type: Report from Study
  Country: US (occurrence: US)
  Receive Date: 20160617
  Receipt Date: 20160617
  Transmission Date: 20160815
  Serious: No
  Sender: FDA-Public Use
  Company Number: PHEH2016US015018

PATIENT

DRUGS (1)
  1. JADENU [Suspect]
     Active Substance: DEFERASIROX
     Indication: IRON OVERLOAD
     Route: 065

REACTIONS (2)
  - Toxicity to various agents [Unknown]
  - Drug ineffective [Unknown]
